FAERS Safety Report 25167309 (Version 1)
Quarter: 2025Q2

REPORT INFORMATION
  Report Type: Spontaneous
  Country: US (occurrence: None)
  Receive Date: 20250404
  Receipt Date: 20250404
  Transmission Date: 20250716
  Serious: Yes (Hospitalization)
  Sender: FDA-CTU
  Company Number: None

PATIENT
  Sex: Female

DRUGS (2)
  1. MYCOPHENOLIC ACID [Suspect]
     Active Substance: MYCOPHENOLIC ACID
     Indication: Renal transplant
     Route: 048
     Dates: start: 20230513
  2. CYCLOSPORINE MODIFIED [Concomitant]
     Active Substance: CYCLOSPORINE

REACTIONS (3)
  - Dyspnoea [None]
  - Infection [None]
  - Transplant [None]
